FAERS Safety Report 7250991-9 (Version None)
Quarter: 2011Q1

REPORT INFORMATION
  Report Type: 
  Country: None (occurrence: None)
  Receive Date: 20110128
  Receipt Date: 20110124
  Transmission Date: 20110831
  Serious: Yes (Life-Threatening, Hospitalization)
  Sender: FDA-Public Use
  Company Number: B0693970A

PATIENT
  Sex: Male
  Weight: 78 kg

DRUGS (22)
  1. LACTULOSE [Concomitant]
     Indication: CONSTIPATION PROPHYLAXIS
     Route: 048
     Dates: start: 20100815
  2. MELPHALAN [Suspect]
     Indication: MULTIPLE MYELOMA
     Dates: start: 20100812
  3. CALCICHEW [Suspect]
     Indication: CALCIUM DEFICIENCY
     Dosage: 2TAB TWICE PER DAY
     Route: 048
     Dates: start: 20100831
  4. CYCLIZINE [Concomitant]
     Indication: NAUSEA
     Route: 048
     Dates: start: 20100825
  5. TAMSULOSIN HCL [Concomitant]
     Indication: URINARY RETENTION
     Dosage: 400MG PER DAY
     Route: 048
     Dates: start: 20040608
  6. THALIDOMIDE [Suspect]
     Indication: MULTIPLE MYELOMA
     Dosage: 200MG PER DAY
     Route: 048
     Dates: start: 20100812
  7. DUTASTERIDE [Suspect]
     Indication: BENIGN PROSTATIC HYPERPLASIA
     Dosage: 500UG PER DAY
     Route: 048
     Dates: start: 20060727
  8. TINZAPARIN [Concomitant]
     Route: 058
     Dates: start: 20110106
  9. PREDNISONE [Suspect]
     Indication: MULTIPLE MYELOMA
     Dosage: 150MG PER DAY
     Dates: start: 20100812
  10. FUROSEMIDE [Concomitant]
     Dosage: 10MG PER DAY
     Route: 042
     Dates: start: 20110105, end: 20110105
  11. CO-CODAMOL [Concomitant]
     Indication: PAIN
     Route: 048
     Dates: start: 20100810
  12. ACICLOVIR [Concomitant]
     Indication: INFECTION PROPHYLAXIS
     Dosage: 800MG TWICE PER DAY
     Route: 048
     Dates: start: 20100812, end: 20110104
  13. BUMETANIDE [Suspect]
     Indication: FLUID RETENTION
     Dosage: 2MG PER DAY
     Route: 048
     Dates: start: 20101104
  14. BISOPROLOL [Concomitant]
     Indication: HYPERTENSION
     Dosage: 2.5MG PER DAY
     Route: 048
     Dates: start: 20070830
  15. NEPRO [Concomitant]
     Route: 048
     Dates: start: 20110106
  16. MOVICOL [Suspect]
     Indication: CONSTIPATION PROPHYLAXIS
     Route: 048
     Dates: start: 20100924
  17. ATORVASTATIN [Concomitant]
     Indication: BLOOD CHOLESTEROL INCREASED
     Dosage: 20MG PER DAY
     Route: 048
     Dates: start: 20070601
  18. COLPERMIN [Concomitant]
     Indication: ABDOMINAL DISTENSION
     Route: 048
     Dates: start: 20100824
  19. ASPIRIN [Suspect]
     Indication: PROPHYLAXIS
     Dosage: 75MG PER DAY
     Route: 048
     Dates: start: 20100923
  20. RANITIDINE [Concomitant]
     Indication: PROPHYLAXIS
     Dosage: 150MG PER DAY
     Route: 048
     Dates: start: 19980928
  21. PERINDOPRIL [Concomitant]
     Indication: PROPHYLAXIS
     Dosage: 2MG PER DAY
     Route: 048
     Dates: start: 20100531
  22. COTRIM [Concomitant]
     Indication: INFECTION PROPHYLAXIS
     Route: 048
     Dates: start: 20100820, end: 20110102

REACTIONS (8)
  - FLUID OVERLOAD [None]
  - PANCYTOPENIA [None]
  - NEUTROPENIC SEPSIS [None]
  - FATIGUE [None]
  - DYSPNOEA [None]
  - DYSPNOEA EXERTIONAL [None]
  - ABDOMINAL DISTENSION [None]
  - RENAL FAILURE ACUTE [None]
